FAERS Safety Report 16747113 (Version 1)
Quarter: 2019Q3

REPORT INFORMATION
  Report Type: Spontaneous
  Country: US (occurrence: US)
  Receive Date: 20190827
  Receipt Date: 20190827
  Transmission Date: 20191005
  Serious: Yes (Disabling, Other)
  Sender: FDA-Public Use
  Company Number: US-ALLERGAN-1934528US

PATIENT
  Sex: Male

DRUGS (7)
  1. BRIMONIDINE [Suspect]
     Active Substance: BRIMONIDINE TARTRATE
     Indication: GLAUCOMA
     Dosage: UNK UNK, BID, AT 7AM AND 7PM
     Route: 047
  2. LATANOPROST. [Suspect]
     Active Substance: LATANOPROST
     Dosage: 2 GTT, QHS
     Route: 047
     Dates: start: 2017
  3. TIMOLOL MALEATE. [Suspect]
     Active Substance: TIMOLOL MALEATE
     Indication: GLAUCOMA
     Dosage: Q12H, AT 7AM AND 7PM
     Route: 047
  4. LATANOPROST. [Suspect]
     Active Substance: LATANOPROST
     Dosage: 1 GTT MAYBE 3,4,5 TIMES A WEEK ON AND OFF
     Route: 047
     Dates: end: 2019
  5. DORZOLAMIDE [Suspect]
     Active Substance: DORZOLAMIDE
     Indication: GLAUCOMA
     Dosage: 2 GTT
     Route: 047
  6. COMBIGAN [Suspect]
     Active Substance: BRIMONIDINE TARTRATE\TIMOLOL MALEATE
     Indication: GLAUCOMA
     Dosage: UNK
     Route: 047
  7. LATANOPROST. [Suspect]
     Active Substance: LATANOPROST
     Indication: GLAUCOMA
     Dosage: 1 GTT, QHS
     Route: 047
     Dates: start: 2019

REACTIONS (10)
  - Drug hypersensitivity [Recovered/Resolved]
  - Glaucoma [Not Recovered/Not Resolved]
  - Skin exfoliation [Unknown]
  - Blindness [Not Recovered/Not Resolved]
  - Intraocular pressure increased [Not Recovered/Not Resolved]
  - Eye discharge [Unknown]
  - Skin irritation [Unknown]
  - Dry skin [Unknown]
  - Swelling face [Recovered/Resolved]
  - Eye swelling [Recovered/Resolved]
